FAERS Safety Report 8507460-5 (Version None)
Quarter: 2012Q3

REPORT INFORMATION
  Report Type: 
  Country: None (occurrence: None)
  Receive Date: 20120712
  Receipt Date: 20120702
  Transmission Date: 20120928
  Serious: Yes (Hospitalization)
  Sender: FDA-Public Use
  Company Number: US-BAYER-2012-037927

PATIENT
  Age: 38 Year
  Sex: Female
  Weight: 72.562 kg

DRUGS (26)
  1. FLONASE [Concomitant]
  2. DROSPIRENONE AND ETHINYL ESTRADIOL [Suspect]
     Indication: CONTRACEPTION
  3. THYROID TAB [Concomitant]
     Dosage: 15 MG, UNK
     Dates: start: 20111122
  4. DROSPIRENONE AND ETHINYL ESTRADIOL [Suspect]
     Indication: ACNE
     Dosage: UNK
     Dates: start: 20090115
  5. FLUTICASONE PROPIONATE [Concomitant]
     Dosage: 50 MCG
     Dates: start: 20111122
  6. AZITHROMYCIN [Concomitant]
     Dosage: 250 MG, UNK
     Dates: start: 20120112
  7. YAZ [Suspect]
     Indication: ACNE
     Dosage: UNK
     Dates: start: 20071201, end: 20100201
  8. YAZ [Suspect]
     Indication: CONTRACEPTION
  9. YAZ [Suspect]
     Indication: PREMENSTRUAL SYNDROME
  10. AMOX TR - POTASSIUM [Concomitant]
     Dosage: 875 -125 MG
     Dates: start: 20111105
  11. ASTEPRO [Concomitant]
     Dosage: 205.5 MCG
     Dates: start: 20111122
  12. DULERA [Concomitant]
     Dosage: 200-5 MCG
     Dates: start: 20111228
  13. PHENAZOPYRIDINE HCL TAB [Concomitant]
     Dosage: 200 MG, UNK
     Dates: start: 20111020
  14. DROSPIRENONE AND ETHINYL ESTRADIOL [Suspect]
     Indication: CONTRACEPTION
     Dosage: UNK
     Dates: end: 20100201
  15. DROSPIRENONE AND ETHINYL ESTRADIOL [Suspect]
     Indication: PREMENSTRUAL SYNDROME
  16. CIPROFLOXACIN HCL [Concomitant]
     Dosage: 500 MG, UNK
     Dates: start: 20111020
  17. VICODIN [Concomitant]
  18. LEVOFLOXACIN [Concomitant]
  19. BENADRYL [Concomitant]
  20. PREDNISONE [Concomitant]
     Dosage: 20 MG, UNK
     Dates: start: 20120112
  21. AUGMENTIN '125' [Concomitant]
     Indication: ACUTE SINUSITIS
  22. ALBUTEROL [Concomitant]
  23. DROSPIRENONE AND ETHINYL ESTRADIOL [Suspect]
     Indication: PREMENSTRUAL SYNDROME
  24. HYDROCODONE BITARTRATE + ACETAMINOPHEN [Concomitant]
     Dosage: 5 MG/500 MG
     Dates: start: 20111020
  25. AUGMENTIN '125' [Concomitant]
     Indication: BRONCHITIS
  26. COUGH AND COLD PREPARATIONS [Concomitant]

REACTIONS (4)
  - DEEP VEIN THROMBOSIS [None]
  - PULMONARY EMBOLISM [None]
  - INJURY [None]
  - PAIN [None]
